FAERS Safety Report 6904794-2 (Version None)
Quarter: 2010Q3

REPORT INFORMATION
  Report Type: 
  Country: None (occurrence: None)
  Receive Date: 20100804
  Receipt Date: 20090713
  Transmission Date: 20110219
  Serious: No
  Sender: FDA-Public Use
  Company Number: US-PFIZER INC-2009210150

PATIENT
  Sex: Female
  Weight: 58.957 kg

DRUGS (8)
  1. LYRICA [Suspect]
     Indication: FIBROMYALGIA
     Dosage: UNK
     Dates: start: 20081001, end: 20081001
  2. LYRICA [Suspect]
     Indication: NEURALGIA
  3. MORPHINE SULFATE [Suspect]
     Dosage: UNK
  4. ADDERALL 10 [Concomitant]
     Dosage: UNK
  5. LEVOXYL [Concomitant]
     Dosage: UNK
  6. KLONOPIN [Concomitant]
     Dosage: UNK
  7. AMBIEN [Concomitant]
     Dosage: UNK
  8. DEXIDRINE [Concomitant]
     Dosage: UNK

REACTIONS (1)
  - FATIGUE [None]
